FAERS Safety Report 8092354-2 (Version None)
Quarter: 2011Q4

REPORT INFORMATION
  Report Type: 
  Country: None (occurrence: None)
  Receive Date: 20111222
  Receipt Date: 20110930
  Transmission Date: 20120403
  Serious: Yes (Hospitalization)
  Sender: FDA-Public Use
  Company Number: UTC-010741

PATIENT
  Age: 71 Year
  Sex: Female

DRUGS (14)
  1. PREDNISONE [Concomitant]
  2. LETAIRIS (AMBRISENTAN) (UNKNOWN) [Concomitant]
  3. PLAVIX [Concomitant]
  4. SPIRIVA HANDIHALER (TIOTOPIUM BROMIDE) (UNKNOWN) [Concomitant]
  5. LOPRESSOR [Concomitant]
  6. XANAX [Concomitant]
  7. TYVASO [Suspect]
     Indication: PULMONARY ARTERIAL HYPERTENSION
     Dosage: 216 MCG  (54 MCG, 4 IN 1 D), INHALATION
     Route: 055
     Dates: start: 20110323
  8. WARFARIN SODIUM [Concomitant]
  9. POTASSIUM (POTASSIUM) (UNKNOWN) [Concomitant]
  10. DILAUDID (HYDROMORPHONE HYDROCHLORIDE) (UNKNOWN) [Concomitant]
  11. PREMARIN [Concomitant]
  12. LASIX [Concomitant]
  13. ZOCOR (SIMVASTATIN) (UNKNOWN) [Concomitant]
  14. NYSTATIN (NYSTATIN) (UNKNOWN) [Concomitant]

REACTIONS (1)
  - PNEUMONIA [None]
